FAERS Safety Report 5938744-2 (Version None)
Quarter: 2008Q4

REPORT INFORMATION
  Report Type: 
  Country: None (occurrence: None)
  Receive Date: 20081103
  Receipt Date: 20081001
  Transmission Date: 20090506
  Serious: No
  Sender: FDA-Public Use
  Company Number: US-BAYER-200711776BWH

PATIENT
  Age: 53 Year
  Sex: Male

DRUGS (10)
  1. LEVITRA [Suspect]
     Indication: ERECTILE DYSFUNCTION
     Dosage: TOTAL DAILY DOSE: 10 MG  UNIT DOSE: 20 MG
     Route: 048
     Dates: start: 20070501
  2. LEVITRA [Suspect]
     Route: 048
     Dates: start: 20070101
  3. LEVITRA [Suspect]
     Route: 048
     Dates: start: 20070101
  4. LEVITRA [Suspect]
     Route: 048
     Dates: start: 20070101
  5. LEVITRA [Suspect]
     Route: 048
     Dates: start: 20070101
  6. LEVITRA [Suspect]
     Dosage: TOTAL DAILY DOSE: 20 MG  UNIT DOSE: 20 MG
     Route: 048
     Dates: start: 20070101
  7. LEVITRA [Suspect]
     Dosage: AS USED: 20 MG
     Dates: start: 20080101
  8. LISINOPRIL [Concomitant]
  9. ^TARTRATE^ [Concomitant]
  10. DILANTIN [Concomitant]

REACTIONS (2)
  - DRUG USE FOR UNKNOWN INDICATION [None]
  - ERECTILE DYSFUNCTION [None]
